FAERS Safety Report 19707156 (Version 1)
Quarter: 2021Q3

REPORT INFORMATION
  Report Type: Spontaneous
  Country: US (occurrence: US)
  Receive Date: 20210816
  Receipt Date: 20210816
  Transmission Date: 20211014
  Serious: No
  Sender: FDA-Public Use
  Company Number: None

PATIENT
  Age: 61 Year
  Sex: Male

DRUGS (1)
  1. SULFUR HEXAFLUORIDE (SULFUR HEXAFLUORIDE MICROSPHERE 25MG/VIL INJ, SUSP) [Suspect]
     Active Substance: SULFUR HEXAFLUORIDE
     Indication: VASCULAR TEST
     Dates: start: 20210726, end: 20210726

REACTIONS (10)
  - Hypotension [None]
  - Myalgia [None]
  - Dyspnoea [None]
  - Hyperhidrosis [None]
  - Anaphylactic reaction [None]
  - Pruritus [None]
  - Pain [None]
  - Rash [None]
  - Dizziness [None]
  - Back pain [None]

NARRATIVE: CASE EVENT DATE: 20210726
